FAERS Safety Report 6186014-2 (Version None)
Quarter: 2009Q2

REPORT INFORMATION
  Report Type: 
  Country: None (occurrence: None)
  Receive Date: 20090511
  Receipt Date: 20090506
  Transmission Date: 20091009
  Serious: Yes (Other)
  Sender: FDA-Public Use
  Company Number: US-GENENTECH-282629

PATIENT
  Sex: Female

DRUGS (3)
  1. HERCEPTIN [Suspect]
     Indication: BREAST CANCER
     Dosage: UNK
     Dates: start: 20090505
  2. DOCETAXEL [Suspect]
     Indication: BREAST CANCER
     Dosage: UNK
     Dates: start: 20090505
  3. CARBOPLATIN [Concomitant]
     Indication: BREAST CANCER
     Dosage: UNK
     Dates: start: 20090505

REACTIONS (1)
  - PLATELET COUNT DECREASED [None]
